FAERS Safety Report 6607929-4 (Version None)
Quarter: 2010Q1

REPORT INFORMATION
  Report Type: 
  Country: None (occurrence: None)
  Receive Date: 20100212
  Receipt Date: 20091019
  Transmission Date: 20100710
  Serious: No
  Sender: FDA-Public Use
  Company Number: 1000009574

PATIENT
  Sex: Female

DRUGS (2)
  1. SAVELLA [Suspect]
  2. DIABETES MEDICATION (NOS) [Concomitant]

REACTIONS (1)
  - BLOOD GLUCOSE DECREASED [None]
